FAERS Safety Report 4541726-9 (Version None)
Quarter: 2004Q4

REPORT INFORMATION
  Report Type: 
  Country: None (occurrence: None)
  Receive Date: 20041230
  Receipt Date: 20041217
  Transmission Date: 20050328
  Serious: Yes (Other)
  Sender: FDA-Public Use
  Company Number: JP-SOLVAY-00304004443

PATIENT
  Age: 70 Year
  Sex: Female
  Weight: 54.7 kg

DRUGS (10)
  1. ZOPICLONE [Concomitant]
     Indication: ILL-DEFINED DISORDER
     Dosage: DAILY DOSE:  UNKNOWN
     Route: 065
  2. FLUVOXAMINE MALEATE [Suspect]
     Indication: DEPRESSION
     Dosage: DAILY DOSE: 150 MILLIGRAM(S)
     Route: 048
  3. FLUNITRAZEPAM [Concomitant]
     Indication: ILL-DEFINED DISORDER
     Dosage: DAILY DOSE:  UNKNOWN
     Route: 065
  4. TIZANIDINE HCL [Interacting]
     Indication: PAIN IN EXTREMITY
     Dosage: DAILY DOSE: 3 MILLIGRAM(S)
     Route: 065
  5. BENIDIPINE [Concomitant]
     Indication: ILL-DEFINED DISORDER
     Dosage: DAILY DOSE:  UNKNOWN
     Route: 065
  6. CANDESARTAN [Concomitant]
     Indication: ILL-DEFINED DISORDER
     Dosage: DAILY DOSE:  UNKNOWN
     Route: 065
  7. TICLOPIDINE HCL [Concomitant]
     Indication: ILL-DEFINED DISORDER
     Dosage: DAILY DOSE:  UNKNOWN
     Route: 065
  8. FAMOTIDINE [Concomitant]
     Indication: ILL-DEFINED DISORDER
     Dosage: DAILY DOSE:  UNKNOWN
     Route: 065
  9. BEZAFIBRATE [Concomitant]
     Indication: ILL-DEFINED DISORDER
     Dosage: DAILY DOSE:  UNKNOWN
     Route: 065
  10. CARBAMAZEPINE [Concomitant]
     Indication: ILL-DEFINED DISORDER
     Dosage: DAILY DOSE:  UNKNOWN
     Route: 065

REACTIONS (5)
  - ANURIA [None]
  - BODY TEMPERATURE DECREASED [None]
  - DRUG INTERACTION [None]
  - DRY MOUTH [None]
  - HEART RATE DECREASED [None]
